FAERS Safety Report 16728506 (Version 3)
Quarter: 2019Q3

REPORT INFORMATION
  Report Type: Spontaneous
  Country: US (occurrence: US)
  Receive Date: 20190822
  Receipt Date: 20190830
  Transmission Date: 20191005
  Serious: Yes (Hospitalization)
  Sender: FDA-Public Use
  Company Number: US-UNITED THERAPEUTICS-UNT-2019-013970

PATIENT
  Age: 60 Year
  Sex: Female
  Weight: 62.59 kg

DRUGS (1)
  1. REMODULIN [Suspect]
     Active Substance: TREPROSTINIL
     Indication: PULMONARY ARTERIAL HYPERTENSION
     Dosage: 0.107 ?G/KG, CONTINUING
     Route: 058
     Dates: start: 20180521

REACTIONS (7)
  - Syncope [Unknown]
  - Pyrexia [Not Recovered/Not Resolved]
  - Dehydration [Unknown]
  - Fluid overload [Unknown]
  - Infusion site infection [Unknown]
  - Pulmonary arterial hypertension [Unknown]
  - Swelling [Unknown]

NARRATIVE: CASE EVENT DATE: 20190816
